FAERS Safety Report 14567877 (Version 1)
Quarter: 2018Q1

REPORT INFORMATION
  Report Type: Spontaneous
  Country: US (occurrence: US)
  Receive Date: 20180223
  Receipt Date: 20180223
  Transmission Date: 20180509
  Serious: No
  Sender: FDA-Public Use
  Company Number: US-FERRINGPH-2017FE04261

PATIENT
  Age: 70 Year
  Sex: Male
  Weight: 88.44 kg

DRUGS (1)
  1. DESMOPRESSIN [Suspect]
     Active Substance: DESMOPRESSIN
     Indication: NOCTURIA
     Dosage: 1 SPRAY, 1 TIME DAILY BEFORE BEDTIME
     Route: 045
     Dates: start: 201707

REACTIONS (2)
  - Product use in unapproved indication [Unknown]
  - Constipation [Not Recovered/Not Resolved]

NARRATIVE: CASE EVENT DATE: 201707
